FAERS Safety Report 4596314-5 (Version None)
Quarter: 2005Q1

REPORT INFORMATION
  Report Type: 
  Country: None (occurrence: None)
  Receive Date: 20050225
  Receipt Date: 20050216
  Transmission Date: 20050727
  Serious: Yes (Disabling)
  Sender: FDA-Public Use
  Company Number: 2005UW02008

PATIENT
  Age: 68 Year
  Sex: Female
  Weight: 57 kg

DRUGS (4)
  1. CRESTOR [Suspect]
     Indication: HYPERCHOLESTEROLAEMIA
     Dosage: 10 MG PO
     Route: 048
     Dates: start: 20041213, end: 20041216
  2. SOMALIUN [Concomitant]
  3. MACRODANTIN [Concomitant]
  4. PURAN T4 [Concomitant]

REACTIONS (3)
  - ABASIA [None]
  - BALANCE DISORDER [None]
  - MUSCULAR WEAKNESS [None]
